FAERS Safety Report 15091015 (Version 1)
Quarter: 2018Q2

REPORT INFORMATION
  Report Type: Spontaneous
  Country: US (occurrence: US)
  Receive Date: 20180629
  Receipt Date: 20180629
  Transmission Date: 20180711
  Serious: No
  Sender: FDA-Public Use
  Company Number: US-AMGEN-USASP2014076697

PATIENT
  Age: 78 Year
  Sex: Female

DRUGS (14)
  1. PROLIA [Suspect]
     Active Substance: DENOSUMAB
     Indication: OSTEOPOROSIS
     Dosage: UNK
     Route: 065
     Dates: start: 201209
  2. SYNTHROID [Concomitant]
     Active Substance: LEVOTHYROXINE SODIUM
  3. FUROSEMIDE. [Concomitant]
     Active Substance: FUROSEMIDE
     Dosage: 40 MG, UNK
  4. FENTANYL. [Concomitant]
     Active Substance: FENTANYL
  5. DILAUDID [Concomitant]
     Active Substance: HYDROMORPHONE HYDROCHLORIDE
     Dosage: 2 MG, UNK
  6. VITAMIN D                          /00107901/ [Concomitant]
     Active Substance: ERGOCALCIFEROL
     Dosage: 2000 MG, UNK
  7. KLOR-CON M10 [Concomitant]
     Active Substance: POTASSIUM CHLORIDE
  8. XARELTO [Concomitant]
     Active Substance: RIVAROXABAN
  9. CALCIUM [Concomitant]
     Active Substance: CALCIUM
     Dosage: 500 MG, UNK
  10. METAXALONE. [Concomitant]
     Active Substance: METAXALONE
  11. DIGOXIN. [Concomitant]
     Active Substance: DIGOXIN
  12. LIDODERM [Concomitant]
     Active Substance: LIDOCAINE
  13. LEVBID [Concomitant]
     Active Substance: HYOSCYAMINE SULFATE
  14. METOPROLOL. [Concomitant]
     Active Substance: METOPROLOL

REACTIONS (2)
  - Tooth loss [Unknown]
  - Tooth extraction [Unknown]

NARRATIVE: CASE EVENT DATE: 201407
